FAERS Safety Report 12348686 (Version 2)
Quarter: 2016Q2

REPORT INFORMATION
  Report Type: Spontaneous
  Country: KR (occurrence: KR)
  Receive Date: 20160509
  Receipt Date: 20160621
  Transmission Date: 20160815
  Serious: Yes (Other)
  Sender: FDA-Public Use
  Company Number: KR-WATSON-2016-09316

PATIENT
  Age: 12 Year
  Sex: Male

DRUGS (4)
  1. MELPHALAN [Suspect]
     Active Substance: MELPHALAN
     Indication: OSTEOSARCOMA
     Dosage: ON DAY -7
     Route: 065
  2. CARBOPLATIN (UNKNOWN) [Suspect]
     Active Substance: CARBOPLATIN
     Indication: OSTEOSARCOMA
     Dosage: FROM DAY - 8 TO DAY -5
     Route: 065
  3. MELPHALAN [Suspect]
     Active Substance: MELPHALAN
     Dosage: ON DAY  -6
     Route: 065
  4. ETOPOSIDE (UNKNOWN) [Suspect]
     Active Substance: ETOPOSIDE
     Indication: OSTEOSARCOMA
     Dosage: FROM DAY - 8 TO DAY -5
     Route: 065

REACTIONS (1)
  - Venoocclusive liver disease [Recovered/Resolved]

NARRATIVE: CASE EVENT DATE: 20110625
